FAERS Safety Report 10034849 (Version 1)
Quarter: 2014Q1

REPORT INFORMATION
  Report Type: Spontaneous
  Country: US (occurrence: None)
  Receive Date: 20140306
  Receipt Date: 20140306
  Transmission Date: 20141002
  Serious: Yes (Other)
  Sender: FDA-Public Use
  Company Number: 163-21880-13032924

PATIENT
  Age: 54 Year
  Sex: Female

DRUGS (2)
  1. REVLIMID (LENALIDOMIDE) (10 MILLIGRAM, CAPUSLES) [Suspect]
     Indication: PLASMA CELL MYELOMA
     Route: 048
     Dates: start: 20100106
  2. ATORVASTATIN [Concomitant]

REACTIONS (4)
  - Hypersensitivity [None]
  - Pruritus [None]
  - Cough [None]
  - Oropharyngeal pain [None]
